FAERS Safety Report 6706300-4 (Version None)
Quarter: 2010Q2

REPORT INFORMATION
  Report Type: 
  Country: None (occurrence: None)
  Receive Date: 20100503
  Receipt Date: 20100423
  Transmission Date: 20101027
  Serious: Yes (Other)
  Sender: FDA-Public Use
  Company Number: US-JNJCH-2010009953

PATIENT
  Age: 67 Year
  Sex: Male

DRUGS (1)
  1. ASPIRIN [Suspect]
     Indication: EVIDENCE BASED TREATMENT
     Dosage: TEXT:UNSPECIFIED
     Route: 065

REACTIONS (1)
  - RASH PAPULAR [None]
